FAERS Safety Report 6787426-6 (Version None)
Quarter: 2010Q2

REPORT INFORMATION
  Report Type: 
  Country: None (occurrence: None)
  Receive Date: 20100623
  Receipt Date: 20070424
  Transmission Date: 20101027
  Serious: No
  Sender: FDA-Public Use
  Company Number: US-PFIZER INC-2007016362

PATIENT
  Sex: Male
  Weight: 79.38 kg

DRUGS (4)
  1. VIRACEPT [Suspect]
     Indication: HIV INFECTION
  2. SUSTIVA [Concomitant]
  3. EPIVIR [Concomitant]
  4. OXYCODONE HCL [Concomitant]

REACTIONS (1)
  - SKIN ODOUR ABNORMAL [None]
